FAERS Safety Report 8603932-3 (Version None)
Quarter: 2012Q3

REPORT INFORMATION
  Report Type: 
  Country: None (occurrence: None)
  Receive Date: 20120820
  Receipt Date: 20120809
  Transmission Date: 20120928
  Serious: No
  Sender: FDA-Public Use
  Company Number: US-B.I. PHARMACEUTICALS,INC./RIDGEFIELD-2011-BP-16685BP

PATIENT
  Sex: Female

DRUGS (7)
  1. PROTONIX [Concomitant]
  2. METOPROLOL TARTRATE [Suspect]
     Indication: HYPERTENSION
  3. DIGOXIN [Suspect]
     Indication: ATRIAL FIBRILLATION
     Route: 048
     Dates: start: 20100101
  4. DIGOXIN [Suspect]
     Indication: HYPERTENSION
  5. PRADAXA [Suspect]
     Indication: ATRIAL FIBRILLATION
     Dosage: 300 MG
     Route: 048
     Dates: start: 20110201
  6. METOPROLOL TARTRATE [Suspect]
     Indication: HEART RATE IRREGULAR
     Route: 048
     Dates: start: 20100101
  7. FUROSEMIDE [Concomitant]
     Indication: HYPERTENSION

REACTIONS (3)
  - TOOTH INFECTION [None]
  - GOUT [None]
  - PAIN IN EXTREMITY [None]
